FAERS Safety Report 7008517-0 (Version None)
Quarter: 2010Q3

REPORT INFORMATION
  Report Type: 
  Country: None (occurrence: None)
  Receive Date: 20100922
  Receipt Date: 20100821
  Transmission Date: 20110219
  Serious: No
  Sender: FDA-Public Use
  Company Number: US-PFIZER INC-2010105403

PATIENT
  Sex: Male
  Weight: 83.9 kg

DRUGS (11)
  1. TIKOSYN [Suspect]
     Indication: ATRIAL FIBRILLATION
     Dosage: 250 UG, 2X/DAY
     Route: 048
     Dates: start: 20100812
  2. ACETYLSALICYLIC ACID [Concomitant]
     Indication: ANTICOAGULANT THERAPY
     Dosage: 325 MG, DAILY
     Route: 048
  3. CLONIDINE [Concomitant]
     Indication: CARDIAC DISORDER
     Dosage: 0.1 MG,DAILY
  4. DIOVAN HCT [Concomitant]
     Indication: CARDIAC DISORDER
     Dosage: 320/12.5 MG, DAILY
     Route: 048
  5. GLYBURIDE [Concomitant]
     Indication: CARDIAC DISORDER
     Dosage: 5 MG, 2X/DAY
  6. LEVOXYL [Concomitant]
     Indication: CARDIAC DISORDER
     Dosage: 0.05 MG, DAILY
     Route: 048
  7. LOVASTATIN [Concomitant]
     Indication: CARDIAC DISORDER
     Dosage: 80 MG, DAILY
  8. MAGNESIUM OXIDE [Concomitant]
     Indication: CARDIAC DISORDER
     Dosage: UNK, DAILY
  9. METFORMIN [Concomitant]
     Indication: CARDIAC DISORDER
     Dosage: 500 MG, 2X/DAY
  10. METOPROLOL [Concomitant]
     Indication: CARDIAC DISORDER
     Dosage: 100 MG, DAILY
  11. PLAVIX [Concomitant]
     Indication: CARDIAC DISORDER
     Dosage: 75 MG, DAILY
     Route: 048

REACTIONS (6)
  - DIZZINESS [None]
  - HEADACHE [None]
  - RESTLESSNESS [None]
  - TERMINAL INSOMNIA [None]
  - TREMOR [None]
  - VISION BLURRED [None]
